FAERS Safety Report 4345781-0 (Version None)
Quarter: 2004Q2

REPORT INFORMATION
  Report Type: 
  Country: None (occurrence: None)
  Receive Date: 20040421
  Receipt Date: 20040412
  Transmission Date: 20050107
  Serious: Yes (Hospitalization)
  Sender: FDA-Public Use
  Company Number: 2003172043JP

PATIENT
  Age: 72 Year
  Sex: Female

DRUGS (3)
  1. CAMPTOSAR [Suspect]
     Indication: GASTRIC CANCER
     Dosage: 80 MG, DAILY, CYCLIC, IV DRIP
     Route: 041
     Dates: start: 20030714, end: 20030714
  2. TAXOTERE [Suspect]
     Indication: GASTRIC CANCER
     Dosage: 50 MG, DAILY, CYCLIC, IV DRIP
     Route: 041
     Dates: start: 20030714, end: 20030714
  3. TS-10 [Suspect]
     Indication: GASTRIC CANCER
     Dosage: 100 MG, ORAL
     Route: 048
     Dates: start: 20030609, end: 20030701

REACTIONS (3)
  - DIARRHOEA [None]
  - INTERSTITIAL LUNG DISEASE [None]
  - LEUKOPENIA [None]
